FAERS Safety Report 22288174 (Version 1)
Quarter: 2023Q2

REPORT INFORMATION
  Report Type: Report from Study
  Country: IT (occurrence: IT)
  Receive Date: 20230505
  Receipt Date: 20230505
  Transmission Date: 20230722
  Serious: Yes (Hospitalization, Other)
  Sender: FDA-Public Use
  Company Number: IT-002147023-NVSC2023IT100487

PATIENT
  Age: 71 Year
  Sex: Male
  Weight: 94 kg

DRUGS (19)
  1. CAPMATINIB [Suspect]
     Active Substance: CAPMATINIB
     Indication: Non-small cell lung cancer
     Dosage: 200 MG, BID
     Route: 048
     Dates: start: 20220719
  2. CAPMATINIB [Suspect]
     Active Substance: CAPMATINIB
     Dosage: 200 MG, BID
     Route: 065
     Dates: start: 20220804
  3. CAPMATINIB [Suspect]
     Active Substance: CAPMATINIB
     Dosage: 200 MG, QD
     Route: 065
     Dates: start: 20220906, end: 20220923
  4. CAPMATINIB [Suspect]
     Active Substance: CAPMATINIB
     Dosage: 200 MG, QD
     Route: 065
     Dates: start: 20221005
  5. CAPMATINIB [Suspect]
     Active Substance: CAPMATINIB
     Dosage: 200 MG, QD
     Route: 065
     Dates: start: 20221102
  6. CAPMATINIB [Suspect]
     Active Substance: CAPMATINIB
     Dosage: 200 MG, QD
     Route: 065
     Dates: start: 20230123
  7. CAPMATINIB [Suspect]
     Active Substance: CAPMATINIB
     Dosage: 200 MG, QD
     Route: 065
     Dates: start: 20230419
  8. FUROSEMIDE [Concomitant]
     Active Substance: FUROSEMIDE
     Indication: Product used for unknown indication
     Dosage: 25 MG, QD
     Route: 065
     Dates: start: 20220719
  9. FUROSEMIDE [Concomitant]
     Active Substance: FUROSEMIDE
     Dosage: 25 MG, QD
     Route: 065
     Dates: start: 20220804
  10. FUROSEMIDE [Concomitant]
     Active Substance: FUROSEMIDE
     Dosage: 25 MG, BID
     Route: 065
     Dates: start: 20220906
  11. FUROSEMIDE [Concomitant]
     Active Substance: FUROSEMIDE
     Dosage: 25 MG, TID
     Route: 065
     Dates: start: 20220923
  12. LASIX [Concomitant]
     Active Substance: FUROSEMIDE
     Indication: Product used for unknown indication
     Dosage: UNK (25X3)
     Route: 065
     Dates: start: 20221005
  13. LASIX [Concomitant]
     Active Substance: FUROSEMIDE
     Dosage: UNK (25X3)
     Route: 065
     Dates: start: 20221102
  14. LASIX [Concomitant]
     Active Substance: FUROSEMIDE
     Dosage: UNK (25X3)
     Route: 065
     Dates: start: 20230123
  15. LASIX [Concomitant]
     Active Substance: FUROSEMIDE
     Dosage: UNK (25X3)
     Route: 065
     Dates: start: 20230419
  16. LUVION [Concomitant]
     Indication: Product used for unknown indication
     Dosage: UNK (100)
     Route: 065
     Dates: start: 20221005
  17. LUVION [Concomitant]
     Dosage: UNK (100)
     Route: 065
     Dates: start: 20221102
  18. LUVION [Concomitant]
     Dosage: UNK (100)
     Route: 065
     Dates: start: 20230123
  19. LUVION [Concomitant]
     Dosage: UNK (100)
     Route: 065
     Dates: start: 20230419

REACTIONS (7)
  - Dyspnoea [Recovering/Resolving]
  - Capillary leak syndrome [Unknown]
  - Hypotension [Unknown]
  - Asthenia [Unknown]
  - Abdominal pain [Unknown]
  - Generalised oedema [Unknown]
  - Oedema peripheral [Not Recovered/Not Resolved]

NARRATIVE: CASE EVENT DATE: 20220719
